FAERS Safety Report 23944848 (Version 1)
Quarter: 2024Q2

REPORT INFORMATION
  Report Type: Spontaneous
  Country: US (occurrence: US)
  Receive Date: 20240606
  Receipt Date: 20240606
  Transmission Date: 20240716
  Serious: No
  Sender: FDA-Public Use
  Company Number: US-JNJFOC-20240601052

PATIENT
  Sex: Female

DRUGS (2)
  1. SPRAVATO [Suspect]
     Active Substance: ESKETAMINE
     Indication: Depression
     Dates: start: 20230912
  2. SPRAVATO [Suspect]
     Active Substance: ESKETAMINE
     Dosage: THERAPY DATES: 19/SEP/2023, 22/SEP/2023,26/SEP/2023,29/SEP/2023, 03/OCT/2023, 10/OCT/2023, 24/OCT/20
     Dates: start: 20230915, end: 20240530

REACTIONS (3)
  - Anxiety [Unknown]
  - Discomfort [Unknown]
  - Psychotic disorder [Unknown]
